FAERS Safety Report 5812464-7 (Version None)
Quarter: 2008Q3

REPORT INFORMATION
  Report Type: 
  Country: None (occurrence: None)
  Receive Date: 20080715
  Receipt Date: 20080715
  Transmission Date: 20090109
  Serious: Yes (Hospitalization)
  Sender: FDA-Public Use
  Company Number: None

PATIENT
  Age: 68 Year
  Sex: Male
  Weight: 39.2361 kg

DRUGS (3)
  1. CLOFARABINE [Suspect]
     Dosage: 76MG DAILY IV DRIP
     Route: 041
     Dates: start: 20080417
  2. CAMPATH [Suspect]
     Dosage: 20 MG DAILY IV DRIP
     Route: 041
     Dates: start: 20080417
  3. MELPHALAN [Suspect]
     Dosage: 266 MG DAILY IV DRIP
     Route: 041
     Dates: start: 20080422

REACTIONS (2)
  - TACHYCARDIA [None]
  - TRANSAMINASES INCREASED [None]
